FAERS Safety Report 7232583-0 (Version None)
Quarter: 2011Q1

REPORT INFORMATION
  Report Type: 
  Country: None (occurrence: None)
  Receive Date: 20110119
  Receipt Date: 20110113
  Transmission Date: 20110831
  Serious: Yes (Hospitalization, Other)
  Sender: FDA-Public Use
  Company Number: CA-AMGEN-CANSP2011002235

PATIENT

DRUGS (6)
  1. PMS-FERROUS SULFATE [Concomitant]
  2. ASAPHEN [Concomitant]
  3. ENBREL [Suspect]
     Indication: PSORIASIS
     Dosage: 50 MG, QWK
     Dates: start: 20061221, end: 20101024
  4. ALENDRONATE [Concomitant]
  5. METFORMIN HYDROCHLORIDE [Concomitant]
  6. DIPROSONE                          /00008502/ [Concomitant]

REACTIONS (5)
  - COMA [None]
  - AMNESIA [None]
  - DYSPNOEA [None]
  - CARDIAC DISORDER [None]
  - PSORIASIS [None]
